FAERS Safety Report 9294757 (Version 2)
Quarter: 2013Q4

REPORT INFORMATION
  Report Type: Report from Study
  Country: BR (occurrence: BR)
  Receive Date: 20130517
  Receipt Date: 20131217
  Transmission Date: 20140711
  Serious: Yes (Hospitalization)
  Sender: FDA-Public Use
  Company Number: BR-NOVOPROD-377880

PATIENT
  Age: 64 Year
  Sex: Male
  Weight: 78.5 kg

DRUGS (10)
  1. BLINDED LIRAGLUTIDE FLEXPEN [Suspect]
     Indication: TYPE 2 DIABETES MELLITUS
     Dosage: 1.8 MG, QD
     Route: 058
     Dates: start: 20110524, end: 20130411
  2. BLINDED NO DRUG GIVEN [Suspect]
     Indication: TYPE 2 DIABETES MELLITUS
     Dosage: 1.8 MG, QD
     Route: 058
     Dates: start: 20110524, end: 20130411
  3. BLINDED PLACEBO FLEXPEN [Suspect]
     Indication: TYPE 2 DIABETES MELLITUS
     Dosage: 1.8 MG, QD
     Route: 058
     Dates: start: 20110524, end: 20130411
  4. BLINDED PLACEBO RUN IN [Suspect]
     Indication: TYPE 2 DIABETES MELLITUS
     Dosage: 1.8 MG, QD
     Route: 058
     Dates: start: 20110524, end: 20130411
  5. BLINDED UNKNOWN [Suspect]
     Indication: TYPE 2 DIABETES MELLITUS
     Dosage: 1.8 MG, QD
     Route: 058
     Dates: start: 20110524, end: 20130411
  6. BLINDED LIRAGLUTIDE FLEXPEN [Suspect]
     Dosage: 1.8 MG, QD
     Route: 058
     Dates: start: 20130414
  7. BLINDED NO DRUG GIVEN [Suspect]
     Dosage: 1.8 MG, QD
     Route: 058
     Dates: start: 20130414
  8. BLINDED PLACEBO FLEXPEN [Suspect]
     Dosage: 1.8 MG, QD
     Route: 058
     Dates: start: 20130414
  9. BLINDED PLACEBO RUN IN [Suspect]
     Dosage: 1.8 MG, QD
     Route: 058
     Dates: start: 20130414
  10. BLINDED UNKNOWN [Suspect]
     Dosage: 1.8 MG, QD
     Route: 058
     Dates: start: 20130414

REACTIONS (1)
  - Abdominal pain [Recovered/Resolved]
